FAERS Safety Report 9054160 (Version 1)
Quarter: 2013Q1

REPORT INFORMATION
  Report Type: Spontaneous
  Country: US (occurrence: US)
  Receive Date: 20130208
  Receipt Date: 20130208
  Transmission Date: 20140127
  Serious: Yes (Hospitalization)
  Sender: FDA-Public Use
  Company Number: US-BAYER-2013-015110

PATIENT
  Age: 34 Year
  Sex: Female
  Weight: 70.3 kg

DRUGS (7)
  1. YAZ [Suspect]
  2. OCELLA [Suspect]
  3. YASMIN [Suspect]
  4. ARMOUR THYROID [Concomitant]
     Dosage: 60 MG, UNK
     Route: 048
     Dates: start: 20090406, end: 20120507
  5. SINGULAIR [Concomitant]
     Dosage: 10 MG, UNK
     Route: 048
     Dates: start: 20100313
  6. DEMEROL [Concomitant]
  7. VENTOLIN [SALBUTAMOL] [Concomitant]

REACTIONS (1)
  - Intracranial venous sinus thrombosis [None]
